FAERS Safety Report 19071060 (Version 1)
Quarter: 2021Q1

REPORT INFORMATION
  Report Type: Spontaneous
  Country: IT (occurrence: IT)
  Receive Date: 20210330
  Receipt Date: 20210330
  Transmission Date: 20210420
  Serious: Yes (Life-Threatening, Hospitalization)
  Sender: FDA-Public Use
  Company Number: IT-TEVA-2021-IT-1895573

PATIENT
  Age: 53 Year
  Sex: Female

DRUGS (5)
  1. FLUMAZENIL. [Suspect]
     Active Substance: FLUMAZENIL
     Route: 040
  2. ZOLPIDEM [Suspect]
     Active Substance: ZOLPIDEM TARTRATE
     Indication: SUICIDE ATTEMPT
     Dosage: DELIBERATE INGESTION OF 9000 MG OF ZOLPIDEM CONSUMED IN THE FORM OF 30 BOTTLES OF 30ML OF ORAL SO...
     Route: 048
  3. NALOXONE [Suspect]
     Active Substance: NALOXONE
     Indication: TOXICITY TO VARIOUS AGENTS
     Route: 042
  4. ALPRAZOLAM. [Suspect]
     Active Substance: ALPRAZOLAM
     Indication: SUICIDE ATTEMPT
     Dosage: UNKNOWN QUANTITY
     Route: 065
  5. FLUMAZENIL. [Suspect]
     Active Substance: FLUMAZENIL
     Indication: TOXICITY TO VARIOUS AGENTS
     Route: 042

REACTIONS (7)
  - Therapy non-responder [Recovered/Resolved]
  - Coma [Recovered/Resolved]
  - Intentional overdose [Recovered/Resolved]
  - Transaminases increased [Recovered/Resolved]
  - Toxicity to various agents [Recovered/Resolved]
  - Suicide attempt [Recovered/Resolved]
  - Encephalopathy [Recovered/Resolved]
